FAERS Safety Report 9950543 (Version 1)
Quarter: 2014Q1

REPORT INFORMATION
  Report Type: Report from Study
  Country: US (occurrence: US)
  Receive Date: 20140304
  Receipt Date: 20140304
  Transmission Date: 20141002
  Serious: No
  Sender: FDA-Public Use
  Company Number: US-ABBVIE-13P-163-1073560-00

PATIENT
  Age: 39 Year
  Sex: Female
  Weight: 48.58 kg

DRUGS (8)
  1. HUMIRA [Suspect]
     Indication: CROHN^S DISEASE
     Dates: start: 20130315, end: 20130315
  2. HUMIRA [Suspect]
     Dates: start: 20130329, end: 20130329
  3. LEXAPRO [Concomitant]
     Indication: PAIN
  4. ENTECORT [Concomitant]
     Indication: CROHN^S DISEASE
  5. PENTASA [Concomitant]
     Indication: CROHN^S DISEASE
  6. COD OIL [Concomitant]
     Indication: SUPPLEMENTATION THERAPY
  7. ALOE VERA [Concomitant]
     Indication: SUPPLEMENTATION THERAPY
  8. KLONOPIN [Concomitant]
     Indication: ANXIETY

REACTIONS (5)
  - Injection site pain [Not Recovered/Not Resolved]
  - Vomiting [Not Recovered/Not Resolved]
  - Fatigue [Not Recovered/Not Resolved]
  - Injection site pain [Not Recovered/Not Resolved]
  - Pollakiuria [Not Recovered/Not Resolved]
